FAERS Safety Report 8623001-6 (Version None)
Quarter: 2012Q3

REPORT INFORMATION
  Report Type: 
  Country: None (occurrence: None)
  Receive Date: 20120827
  Receipt Date: 20120816
  Transmission Date: 20120928
  Serious: Yes (Other)
  Sender: FDA-Public Use
  Company Number: CA-JNJFOC-20120810129

PATIENT
  Sex: Female
  Weight: 44 kg

DRUGS (4)
  1. SYNTHROID [Concomitant]
     Indication: THYROID DISORDER
     Dosage: SINCE YEARS
     Route: 065
  2. TYLENOL-500 [Suspect]
     Route: 048
  3. VITAMIN D [Concomitant]
     Indication: ROUTINE HEALTH MAINTENANCE
     Route: 065
  4. TYLENOL-500 [Suspect]
     Indication: HIP ARTHROPLASTY
     Dosage: 1 CAPLET, TWICE A DAY
     Route: 048
     Dates: start: 20100101

REACTIONS (10)
  - ENZYME ABNORMALITY [None]
  - EAR DISORDER [None]
  - WHEEZING [None]
  - URTICARIA [None]
  - GASTRITIS [None]
  - INTENTIONAL DRUG MISUSE [None]
  - EXPIRED DRUG ADMINISTERED [None]
  - BACK PAIN [None]
  - ANGIOEDEMA [None]
  - MUSCLE SPASMS [None]
